FAERS Safety Report 6300551-9 (Version None)
Quarter: 2009Q3

REPORT INFORMATION
  Report Type: 
  Country: None (occurrence: None)
  Receive Date: 20090806
  Receipt Date: 20090413
  Transmission Date: 20100115
  Serious: No
  Sender: FDA-Public Use
  Company Number: US-ABBOTT-09P-163-0567911-00

PATIENT
  Sex: Male
  Weight: 98.972 kg

DRUGS (4)
  1. DEPAKOTE ER [Suspect]
     Indication: MIGRAINE
     Dosage: 1500 MG IN AM  1000 MG AT HS
     Route: 048
  2. EFFEXOR [Concomitant]
     Indication: MIGRAINE
  3. NORTRIPTYLINE HCL [Concomitant]
     Indication: MIGRAINE
  4. ALPRAZOLAM [Concomitant]
     Indication: TREMOR

REACTIONS (1)
  - COGNITIVE DISORDER [None]
